FAERS Safety Report 4950117-8 (Version None)
Quarter: 2006Q1

REPORT INFORMATION
  Report Type: 
  Country: None (occurrence: None)
  Receive Date: 20060315
  Receipt Date: 20060306
  Transmission Date: 20060701
  Serious: No
  Sender: FDA-Public Use
  Company Number: 06H-055-0306099-00

PATIENT
  Age: 6 Year
  Sex: Male

DRUGS (5)
  1. SUCCINYLCHOLINE CHLORIDE [Suspect]
     Indication: INDUCTION AND MAINTENANCE OF ANAESTHESIA
  2. THIOPENTAL SODIUM [Concomitant]
  3. HALOTHANE [Concomitant]
  4. NITROUS OXIDE W/ OXYGEN [Concomitant]
  5. ALCURONIUM [Concomitant]

REACTIONS (6)
  - ANAESTHETIC COMPLICATION [None]
  - CONDITION AGGRAVATED [None]
  - HYPERKALAEMIA [None]
  - PROCEDURAL HYPOTENSION [None]
  - PULSE ABSENT [None]
  - VENTRICULAR TACHYCARDIA [None]
